FAERS Safety Report 19942014 (Version 5)
Quarter: 2022Q1

REPORT INFORMATION
  Report Type: Spontaneous
  Country: CA (occurrence: CA)
  Receive Date: 20211011
  Receipt Date: 20220208
  Transmission Date: 20220424
  Serious: Yes (Hospitalization, Other)
  Sender: FDA-Public Use
  Company Number: CA-PFIZER INC-202101006987

PATIENT
  Age: 52 Year
  Sex: Female
  Weight: 44.3 kg

DRUGS (14)
  1. ZIRABEV [Suspect]
     Active Substance: BEVACIZUMAB-BVZR
     Indication: Glioblastoma multiforme
     Dosage: 700 MG Q 3 WEEKS
     Route: 042
     Dates: start: 20210907
  2. ZIRABEV [Suspect]
     Active Substance: BEVACIZUMAB-BVZR
     Dosage: 700 MG Q 3 WEEKS
     Route: 042
     Dates: start: 20210907
  3. ZIRABEV [Suspect]
     Active Substance: BEVACIZUMAB-BVZR
     Dosage: 300 MG, ROUTE-PIV
     Route: 042
     Dates: start: 20210907, end: 20210907
  4. ZIRABEV [Suspect]
     Active Substance: BEVACIZUMAB-BVZR
     Dosage: 400 MG, ROUTE-PIV
     Route: 042
     Dates: start: 20210907, end: 20210907
  5. ZIRABEV [Suspect]
     Active Substance: BEVACIZUMAB-BVZR
     Dosage: 400MG, ROUTE: PICC
     Route: 042
     Dates: start: 20210928
  6. ZIRABEV [Suspect]
     Active Substance: BEVACIZUMAB-BVZR
     Dosage: 300MG,ROUTE: PICC
     Route: 042
     Dates: start: 20210928
  7. ZIRABEV [Suspect]
     Active Substance: BEVACIZUMAB-BVZR
     Dosage: 700 MG, Q3 WEEKS
     Route: 042
     Dates: start: 20211019
  8. ZIRABEV [Suspect]
     Active Substance: BEVACIZUMAB-BVZR
     Dosage: 700 MG, Q3 WEEKS
     Route: 042
     Dates: start: 20211019
  9. ZIRABEV [Suspect]
     Active Substance: BEVACIZUMAB-BVZR
     Dosage: 300 MG, ROUTE: CVAD (CVAD LOCATION: RIGHT CHEST)
     Route: 042
     Dates: start: 20211019, end: 20211019
  10. ZIRABEV [Suspect]
     Active Substance: BEVACIZUMAB-BVZR
     Dosage: 400MG, ROUTE: CVAD (CVAD LOCATION: RIGHT CHEST)
     Route: 042
     Dates: start: 20211019, end: 20211019
  11. DEXAMETHASONE [Concomitant]
     Active Substance: DEXAMETHASONE
     Dosage: UNK
  12. HEPARIN [Concomitant]
     Active Substance: HEPARIN SODIUM
     Indication: Catheter management
     Dosage: 5 ML
     Dates: start: 20211019, end: 20211019
  13. SODIUM CHLORIDE [Concomitant]
     Active Substance: SODIUM CHLORIDE
     Indication: Catheter management
     Dosage: UNK, 20 CC, FLUSHED WITH: 20CC NS
     Dates: start: 20211019, end: 20211019
  14. SODIUM CHLORIDE [Concomitant]
     Active Substance: SODIUM CHLORIDE
     Dosage: UNK, 30 CC
     Dates: start: 20211019, end: 20211019

REACTIONS (5)
  - Pneumonia aspiration [Unknown]
  - Aphasia [Unknown]
  - Off label use [Unknown]
  - Off label use [Unknown]
  - Epistaxis [Unknown]

NARRATIVE: CASE EVENT DATE: 20210101
